FAERS Safety Report 15383603 (Version 1)
Quarter: 2018Q3

REPORT INFORMATION
  Report Type: Report from Study
  Country: US (occurrence: US)
  Receive Date: 20180913
  Receipt Date: 20180913
  Transmission Date: 20181010
  Serious: Yes (Hospitalization, Other)
  Sender: FDA-Public Use
  Company Number: US-SHIRE-US201835173

PATIENT
  Age: 50 Year
  Sex: Female

DRUGS (1)
  1. GATTEX [Suspect]
     Active Substance: TEDUGLUTIDE\WATER
     Indication: MALABSORPTION
     Dosage: 2.95 MG, 1X/DAY:QD
     Route: 058
     Dates: start: 20170829

REACTIONS (2)
  - Pneumothorax [Unknown]
  - Sepsis [Unknown]

NARRATIVE: CASE EVENT DATE: 20180824
